FAERS Safety Report 22307079 (Version 2)
Quarter: 2023Q2

REPORT INFORMATION
  Report Type: Report from Study
  Country: US (occurrence: US)
  Receive Date: 20230511
  Receipt Date: 20230512
  Transmission Date: 20230721
  Serious: No
  Sender: FDA-Public Use
  Company Number: US-002147023-NVSC2023US105364

PATIENT
  Sex: Female

DRUGS (8)
  1. CLOBETASOL [Suspect]
     Active Substance: CLOBETASOL
     Indication: Psoriasis
     Dosage: 0.05 % (CREAM AND OINTMENT)
     Route: 061
  2. HYDROCORTISONE [Suspect]
     Active Substance: HYDROCORTISONE
     Indication: Psoriasis
     Dosage: 2.5 %
     Route: 061
  3. PANTOPRAZOLE [Suspect]
     Active Substance: PANTOPRAZOLE
     Indication: Psoriasis
     Dosage: 40 MG
     Route: 042
  4. ATENOLOL [Suspect]
     Active Substance: ATENOLOL
     Indication: Psoriasis
     Dosage: UNK
     Route: 048
  5. PAMELOR [Suspect]
     Active Substance: NORTRIPTYLINE HYDROCHLORIDE
     Indication: Psoriasis
     Dosage: 50 MG
     Route: 048
  6. HYDROCHLOROTHIAZIDE [Suspect]
     Active Substance: HYDROCHLOROTHIAZIDE
     Indication: Psoriasis
     Dosage: UNK
     Route: 048
  7. NEURONTIN [Suspect]
     Active Substance: GABAPENTIN
     Indication: Psoriasis
     Dosage: 500 MG
     Route: 048
  8. CIMZIA [Suspect]
     Active Substance: CERTOLIZUMAB PEGOL
     Indication: Product used for unknown indication
     Dosage: UNK
     Route: 065

REACTIONS (2)
  - Therapeutic product ineffective [Unknown]
  - Product use in unapproved indication [Unknown]
